FAERS Safety Report 7644688-0 (Version None)
Quarter: 2011Q3

REPORT INFORMATION
  Report Type: 
  Country: None (occurrence: None)
  Receive Date: 20110729
  Receipt Date: 20110721
  Transmission Date: 20111222
  Serious: Yes (Other)
  Sender: FDA-Public Use
  Company Number: PHHY2011DE67436

PATIENT
  Age: 15 Year
  Sex: Male

DRUGS (2)
  1. ZONISAMIDE [Suspect]
     Indication: CONVULSION
     Dosage: UNK
  2. LACOSAMIDE [Suspect]
     Indication: CONVULSION
     Dosage: UNK

REACTIONS (2)
  - HALLUCINATION, VISUAL [None]
  - AGGRESSION [None]
